FAERS Safety Report 5703033-8 (Version None)
Quarter: 2008Q2

REPORT INFORMATION
  Report Type: 
  Country: None (occurrence: None)
  Receive Date: 20080408
  Receipt Date: 20080331
  Transmission Date: 20081010
  Serious: Yes (Hospitalization)
  Sender: FDA-Public Use
  Company Number: 2008SP006249

PATIENT
  Age: 82 Year
  Sex: Female
  Weight: 62 kg

DRUGS (2)
  1. PEG-INTRON [Suspect]
     Indication: MALIGNANT MELANOMA
     Dosage: 3 MCG; SC
     Route: 058
     Dates: start: 20080317, end: 20080325
  2. SORAFENIB (SORAFENIB) [Suspect]
     Indication: MALIGNANT MELANOMA
     Dosage: 400 MG;PO
     Route: 048
     Dates: start: 20080317, end: 20080327

REACTIONS (1)
  - PALMAR-PLANTAR ERYTHRODYSAESTHESIA SYNDROME [None]
